FAERS Safety Report 6992296-7 (Version None)
Quarter: 2010Q3

REPORT INFORMATION
  Report Type: 
  Country: None (occurrence: None)
  Receive Date: 20100915
  Receipt Date: 20100915
  Transmission Date: 20110219
  Serious: Yes (Other)
  Sender: FDA-Public Use
  Company Number: None

PATIENT
  Age: 60 Year
  Sex: Female
  Weight: 56.6996 kg

DRUGS (1)
  1. ZICAM NASAL SWABS [Suspect]
     Indication: NASOPHARYNGITIS
     Dates: start: 20100602, end: 20100603

REACTIONS (3)
  - ANOSMIA [None]
  - DYSGEUSIA [None]
  - PAROSMIA [None]
